FAERS Safety Report 24068189 (Version 2)
Quarter: 2024Q3

REPORT INFORMATION
  Report Type: Spontaneous
  Country: JP (occurrence: JP)
  Receive Date: 20240710
  Receipt Date: 20240725
  Transmission Date: 20241017
  Serious: Yes (Hospitalization, Other)
  Sender: SANDOZ
  Company Number: JP-002147023-NVSJ2024JP008129

PATIENT
  Age: 86 Year
  Sex: Female

DRUGS (2)
  1. EXELON PATCH [Suspect]
     Active Substance: RIVASTIGMINE
     Indication: Product used for unknown indication
     Dosage: 18 MG, PATCH10(CM2)
     Route: 062
  2. EXELON PATCH [Suspect]
     Active Substance: RIVASTIGMINE
     Dosage: 9 MG, PATCH5(CM2)
     Route: 062

REACTIONS (3)
  - Subdural haematoma [Unknown]
  - Fall [Unknown]
  - Coronavirus infection [Unknown]
